FAERS Safety Report 23533060 (Version 1)
Quarter: 2024Q1

REPORT INFORMATION
  Report Type: Spontaneous
  Country: JP (occurrence: JP)
  Receive Date: 20240216
  Receipt Date: 20240216
  Transmission Date: 20240409
  Serious: Yes (Other)
  Sender: FDA-Public Use
  Company Number: JP-PFIZER INC-202400042079

PATIENT
  Age: 65 Year
  Sex: Female

DRUGS (3)
  1. RHEUMATREX [Suspect]
     Active Substance: METHOTREXATE SODIUM
     Indication: Spondylitis
     Dosage: 6 MG, WEEKLY
     Dates: start: 20120403
  2. PREDNISOLONE [Suspect]
     Active Substance: PREDNISOLONE
     Indication: Spondylitis
     Dosage: 10 MG
     Dates: start: 20120403
  3. HUMIRA [Concomitant]
     Active Substance: ADALIMUMAB
     Indication: Spondylitis
     Dosage: UNK
     Route: 058

REACTIONS (4)
  - Bronchopulmonary aspergillosis [Unknown]
  - Opportunistic infection [Unknown]
  - Immunosuppression [Unknown]
  - Off label use [Unknown]

NARRATIVE: CASE EVENT DATE: 20120403
